FAERS Safety Report 4567332-8 (Version None)
Quarter: 2005Q1

REPORT INFORMATION
  Report Type: 
  Country: None (occurrence: None)
  Receive Date: 20050128
  Receipt Date: 20050111
  Transmission Date: 20050727
  Serious: Yes (Death)
  Sender: FDA-Public Use
  Company Number: S05-FRA-00280-01

PATIENT
  Age: 89 Year
  Sex: Female

DRUGS (5)
  1. MEMANTINE HCL [Suspect]
     Indication: SENILE DEMENTIA
     Dosage: 5 MG QD PO
     Route: 048
     Dates: start: 20031220, end: 20031205
  2. PLAVIX [Concomitant]
  3. NITROGLYCERIN [Concomitant]
  4. FOSAMAX [Concomitant]
  5. OROCAL (CALCIUM CARBONATE) [Concomitant]

REACTIONS (3)
  - ACUTE MYOCARDIAL INFARCTION [None]
  - CARDIAC FAILURE [None]
  - HEART RATE INCREASED [None]
